FAERS Safety Report 7978593-7 (Version None)
Quarter: 2011Q4

REPORT INFORMATION
  Report Type: 
  Country: None (occurrence: None)
  Receive Date: 20111206
  Receipt Date: 20111125
  Transmission Date: 20120403
  Serious: Yes (Other)
  Sender: FDA-Public Use
  Company Number: 7097046

PATIENT
  Age: 56 Year
  Sex: Male

DRUGS (1)
  1. LEVOTHYROXINE SODIUM [Suspect]
     Indication: THYROID CANCER
     Dosage: 150 MCG (150 MCG,1 IN 1 D) ORAL
     Route: 048
     Dates: start: 20100101

REACTIONS (2)
  - GASTRITIS ATROPHIC [None]
  - ALANINE AMINOTRANSFERASE INCREASED [None]
